FAERS Safety Report 12798917 (Version 1)
Quarter: 2016Q3

REPORT INFORMATION
  Report Type: Spontaneous
  Country: US (occurrence: US)
  Receive Date: 20160930
  Receipt Date: 20160930
  Transmission Date: 20161109
  Serious: No
  Sender: FDA-Public Use
  Company Number: None

PATIENT
  Age: 73 Year
  Sex: Male

DRUGS (6)
  1. ADVAIR HFA [Concomitant]
     Active Substance: FLUTICASONE PROPIONATE\SALMETEROL XINAFOATE
  2. LISINOPRIL. [Concomitant]
     Active Substance: LISINOPRIL
  3. COENZYME Q10 [Concomitant]
     Active Substance: UBIDECARENONE
  4. TUDORZA PRESSAIR [Concomitant]
     Active Substance: ACLIDINIUM BROMIDE
  5. LUPRON DEPOT [Suspect]
     Active Substance: LEUPROLIDE ACETATE
     Indication: PROSTATE CANCER
     Dosage: 22.5MG EVERY 3 MONTHS INTRAMUSCULARLY
     Route: 030
     Dates: start: 20130515
  6. ONE A DAY [Concomitant]

REACTIONS (1)
  - Hot flush [None]

NARRATIVE: CASE EVENT DATE: 20160813
